FAERS Safety Report 12407613 (Version 2)
Quarter: 2016Q3

REPORT INFORMATION
  Report Type: Spontaneous
  Country: US (occurrence: US)
  Receive Date: 20160526
  Receipt Date: 20160720
  Transmission Date: 20161109
  Serious: Yes (Other)
  Sender: FDA-Public Use
  Company Number: US-BAYER-2016-099026

PATIENT
  Age: 38 Year
  Sex: Female
  Weight: 72.11 kg

DRUGS (4)
  1. CYTOTEC [Concomitant]
     Active Substance: MISOPROSTOL
     Indication: INTRA-UTERINE CONTRACEPTIVE DEVICE INSERTION
     Dosage: UNK
     Dates: start: 20110606
  2. MIRENA [Suspect]
     Active Substance: LEVONORGESTREL
     Indication: CONTRACEPTION
     Dosage: 20 MCG/24HR, CONT
     Route: 015
     Dates: start: 20110606
  3. LIDOCAINE. [Concomitant]
     Active Substance: LIDOCAINE
     Indication: INTRA-UTERINE CONTRACEPTIVE DEVICE INSERTION
  4. MIRENA [Suspect]
     Active Substance: LEVONORGESTREL
     Indication: CONTRACEPTION
     Dosage: 20 MCG/24HR, CONT
     Route: 015
     Dates: end: 20110531

REACTIONS (6)
  - Uterine cervix stenosis [None]
  - Device dislocation [Not Recovered/Not Resolved]
  - Procedural pain [None]
  - Embedded device [Not Recovered/Not Resolved]
  - Device difficult to use [None]
  - Post procedural discomfort [None]

NARRATIVE: CASE EVENT DATE: 20110531
